FAERS Safety Report 18249338 (Version 1)
Quarter: 2020Q3

REPORT INFORMATION
  Report Type: Spontaneous
  Country: ES (occurrence: ES)
  Receive Date: 20200909
  Receipt Date: 20200909
  Transmission Date: 20201103
  Serious: Yes (Death, Hospitalization)
  Sender: FDA-Public Use
  Company Number: ES-PFIZER INC-2020347758

PATIENT
  Age: 65 Year
  Sex: Male
  Weight: 112 kg

DRUGS (15)
  1. MEKTOVI [Suspect]
     Active Substance: BINIMETINIB
     Indication: COLORECTAL CANCER
     Dosage: 45 MG, 2X/DAY (45MG/12H)
     Route: 048
     Dates: start: 20190724, end: 20200609
  2. POTASION [Concomitant]
     Active Substance: POTASSIUM CHLORIDE
     Indication: HYPOKALAEMIA
     Dosage: 2 DF, 2X/DAY (2 CAPS/12H)
     Route: 048
  3. SERC (BETAHISTINE HYDROCHLORIDE) [Concomitant]
     Active Substance: BETAHISTINE HYDROCHLORIDE
     Indication: TINNITUS
     Dosage: 1 DF, 2X/DAY (1 COMP/12H)
     Route: 048
  4. OMEPRAZOL [Concomitant]
     Active Substance: OMEPRAZOLE
     Dosage: 40 MG, 1X/DAY (40MG/24H)
     Route: 048
  5. FOSTER [Concomitant]
     Active Substance: BECLOMETHASONE\FORMOTEROL
     Indication: CHRONIC OBSTRUCTIVE PULMONARY DISEASE
     Dosage: 2 DF, 1X/DAY (2 INHAL/24H)
     Route: 055
  6. MAGNOGENE [MAGNESIUM BROMIDE;MAGNESIUM FLUORIDE;MAGNESIUM HYDROXIDE] [Concomitant]
     Indication: HYPOMAGNESAEMIA
     Dosage: 1 DF, 2X/DAY
     Route: 048
  7. HIGROTONA [Concomitant]
     Active Substance: CHLORTHALIDONE
     Indication: HYPERTENSION
     Dosage: 0.5 DF, 1X/DAY (0.5 COMP/24H)
     Route: 048
  8. OMACOR [Concomitant]
     Active Substance: OMEGA-3-ACID ETHYL ESTERS
     Indication: DYSLIPIDAEMIA
     Dosage: 1 DF, 1X/DAY (1 COMP/24H)
     Route: 048
  9. CARVEDILOL GENERIC [Concomitant]
     Dosage: 0.5 DF, 2X/DAY (0.5 COMP/12H)
     Route: 048
  10. EUCREAS [Concomitant]
     Active Substance: METFORMIN HYDROCHLORIDE\VILDAGLIPTIN
     Indication: DIABETES MELLITUS
     Dosage: 1 DF, 2X/DAY (1 COMP/12H)
     Route: 048
  11. ERBITUX [Concomitant]
     Active Substance: CETUXIMAB
     Indication: COLORECTAL CANCER
     Dosage: 250 MG/M2 (250MG/M2/7 DAYS)
     Route: 042
     Dates: start: 20190724, end: 20200609
  12. TOUJEO [Concomitant]
     Active Substance: INSULIN GLARGINE
     Indication: DIABETES MELLITUS
     Dosage: 26 IU, 1X/DAY (26UI/24H)
     Route: 058
  13. AMERIDE [AMILORIDE HYDROCHLORIDE;HYDROCHLOROTHIAZIDE] [Concomitant]
     Indication: HYPERTENSION
     Dosage: 0.5 DF, 1X/DAY (0.5COMP/24H)
     Route: 048
  14. TRIALMIN [Concomitant]
     Active Substance: GEMFIBROZIL
     Indication: DYSLIPIDAEMIA
     Dosage: 1 DF, 1X/DAY (1 COMP/24H)
     Route: 048
  15. BRAFTOVI [Suspect]
     Active Substance: ENCORAFENIB
     Indication: COLORECTAL CANCER
     Dosage: 300 MG, 1X/DAY (300MG/24H)
     Route: 048
     Dates: start: 20190724, end: 20200609

REACTIONS (4)
  - Product use in unapproved indication [Unknown]
  - Off label use [Unknown]
  - Status epilepticus [Fatal]
  - Hyperammonaemia [Recovered/Resolved]

NARRATIVE: CASE EVENT DATE: 20190724
